FAERS Safety Report 4446863-5 (Version None)
Quarter: 2004Q3

REPORT INFORMATION
  Report Type: 
  Country: None (occurrence: None)
  Receive Date: 20040908
  Receipt Date: 20040803
  Transmission Date: 20050211
  Serious: Yes (Other)
  Sender: FDA-Public Use
  Company Number: 2004226959JP

PATIENT
  Age: 66 Year
  Sex: Female

DRUGS (3)
  1. SULFASALAZINE [Suspect]
     Indication: RHEUMATOID ARTHRITIS
     Dosage: ORAL
     Route: 048
  2. METHOBLASTIN (METHOTREXATE) TABLET [Suspect]
     Dosage: ORAL
     Route: 048
  3. DELTA-CORTEF [Suspect]
     Dosage: ORAL
     Route: 048

REACTIONS (3)
  - ENCEPHALITIS VIRAL [None]
  - EPSTEIN-BARR VIRUS INFECTION [None]
  - MENINGITIS VIRAL [None]
